FAERS Safety Report 25887742 (Version 1)
Quarter: 2025Q4

REPORT INFORMATION
  Report Type: Spontaneous
  Country: US (occurrence: US)
  Receive Date: 20251007
  Receipt Date: 20251007
  Transmission Date: 20260117
  Serious: Yes (Life-Threatening, Hospitalization, Other)
  Sender: STRIDES
  Company Number: US-STRIDES PHARMA UK LTD.-2025SP007979

PATIENT
  Age: 68 Year
  Sex: Male

DRUGS (3)
  1. PREDNISOLONE [Suspect]
     Active Substance: PREDNISOLONE
     Indication: Haemolytic anaemia
     Dosage: 1 MILLIGRAM/KILOGRAM, QD
     Route: 065
  2. ACALABRUTINIB [Suspect]
     Active Substance: ACALABRUTINIB
     Indication: Chronic lymphocytic leukaemia
     Dosage: 100 MILLIGRAM, BID
     Route: 065
  3. CLINDAMYCIN [Concomitant]
     Active Substance: CLINDAMYCIN
     Indication: Cellulitis
     Dosage: UNK
     Route: 065

REACTIONS (8)
  - Central nervous system fungal infection [Unknown]
  - Escherichia infection [Unknown]
  - Disseminated cryptococcosis [Unknown]
  - Cryptococcosis [Unknown]
  - Stenotrophomonas infection [Unknown]
  - Pneumonia cytomegaloviral [Unknown]
  - Aspergillus infection [Unknown]
  - Aspergillus infection [Unknown]
